FAERS Safety Report 16330202 (Version 1)
Quarter: 2019Q2

REPORT INFORMATION
  Report Type: Spontaneous
  Country: TR (occurrence: TR)
  Receive Date: 20190520
  Receipt Date: 20190520
  Transmission Date: 20190711
  Serious: No
  Sender: FDA-Public Use
  Company Number: TR-LUPIN PHARMACEUTICALS INC.-2018-06340

PATIENT
  Sex: Female

DRUGS (8)
  1. LAMOTRIGINE. [Suspect]
     Active Substance: LAMOTRIGINE
     Indication: BIPOLAR I DISORDER
     Dosage: UNK
     Route: 065
     Dates: end: 2006
  2. VALPROATE [Concomitant]
     Active Substance: VALPROIC ACID
     Dosage: UNK (DOSE LOWERED)
     Route: 065
     Dates: start: 2009
  3. SERTRALINE [Concomitant]
     Active Substance: SERTRALINE HYDROCHLORIDE
     Indication: SUICIDE ATTEMPT
     Dosage: UNK (HIGH DOSE)
     Route: 065
     Dates: start: 2009
  4. QUETIAPINE. [Suspect]
     Active Substance: QUETIAPINE
     Dosage: UNK (DOSE LOWERED)
     Route: 065
     Dates: start: 2009
  5. QUETIAPINE. [Suspect]
     Active Substance: QUETIAPINE
     Indication: DEPRESSION
     Dosage: 200 MG, QD
     Route: 065
     Dates: start: 2006, end: 2009
  6. VALPROATE [Concomitant]
     Active Substance: VALPROIC ACID
     Indication: BIPOLAR I DISORDER
     Dosage: UNK (50-100 UG/ML)
     Route: 065
     Dates: start: 2002
  7. QUETIAPINE. [Suspect]
     Active Substance: QUETIAPINE
     Dosage: UNK (DOSES WERE BETWEEN 300-600 MG/DAY; QUETIAPINE WAS TAPERED AND FINALLY REMOVED)
     Route: 065
     Dates: start: 2009, end: 2010
  8. LITHIUM. [Concomitant]
     Active Substance: LITHIUM
     Indication: BIPOLAR I DISORDER
     Dosage: UNK (AT THERAPEUTIC SERUM LEVELS)
     Route: 065
     Dates: start: 2009

REACTIONS (2)
  - Sedation [Unknown]
  - Rash [Unknown]
